FAERS Safety Report 11422870 (Version 1)
Quarter: 2015Q3

REPORT INFORMATION
  Report Type: Spontaneous
  Country: FR (occurrence: FR)
  Receive Date: 20150827
  Receipt Date: 20150827
  Transmission Date: 20151125
  Serious: Yes (Death, Hospitalization)
  Sender: FDA-Public Use
  Company Number: FR-SA-2015SA128832

PATIENT
  Age: 72 Year
  Sex: Female

DRUGS (13)
  1. MOPRAL [Concomitant]
     Active Substance: OMEPRAZOLE SODIUM
  2. LOVENOX [Suspect]
     Active Substance: ENOXAPARIN SODIUM
     Route: 058
     Dates: start: 20150427, end: 20150427
  3. CERTICAN [Concomitant]
     Active Substance: EVEROLIMUS
  4. ALDACTONE [Concomitant]
     Active Substance: SPIRONOLACTONE
     Dosage: FILM COATED DIVISIBLE TABLET
  5. TAHOR [Concomitant]
     Active Substance: ATORVASTATIN CALCIUM
  6. LASILIX [Concomitant]
     Active Substance: FUROSEMIDE
     Dosage: DIVIDABLE
  7. DIFFU  K [Concomitant]
     Active Substance: POTASSIUM CHLORIDE
  8. PRIMPERAN [Concomitant]
     Active Substance: METOCLOPRAMIDE HYDROCHLORIDE
  9. IDEOS [Concomitant]
     Active Substance: CALCIUM CARBONATE\CHOLECALCIFEROL
     Dosage: 500 MG / 400 IU, SUCKING OR CHEWABLE TABLET
  10. SOLUPRED [Concomitant]
     Active Substance: PREDNISOLONE
     Dosage: ORODISPERSIBLE TABLET
  11. PREVISCAN [Suspect]
     Active Substance: FLUINDIONE
     Dosage: FORM: DIVIDABLE
     Route: 048
     Dates: end: 20150427
  12. NEORAL [Concomitant]
     Active Substance: CYCLOSPORINE
  13. LEXOMIL [Concomitant]
     Active Substance: BROMAZEPAM

REACTIONS (4)
  - International normalised ratio increased [Not Recovered/Not Resolved]
  - Anaemia [Not Recovered/Not Resolved]
  - Shock haemorrhagic [Fatal]
  - Haematoma [Not Recovered/Not Resolved]

NARRATIVE: CASE EVENT DATE: 20150427
